FAERS Safety Report 15586350 (Version 1)
Quarter: 2018Q4

REPORT INFORMATION
  Report Type: Spontaneous
  Country: DE (occurrence: DE)
  Receive Date: 20181105
  Receipt Date: 20181105
  Transmission Date: 20190205
  Serious: Yes (Life-Threatening, Hospitalization)
  Sender: FDA-Public Use
  Company Number: DE-BAYER-RCH-78429

PATIENT
  Age: 81 Year
  Sex: Female

DRUGS (7)
  1. BACTRIM-FORTE [Suspect]
     Active Substance: SULFAMETHOXAZOLE\TRIMETHOPRIM
     Indication: URINARY TRACT INFECTION
     Dosage: 1 DF, UNK
     Route: 048
     Dates: start: 19960506, end: 19960508
  2. ACETYLSALICYLIC ACID({=100 MG) [Suspect]
     Active Substance: ASPIRIN
     Indication: THROMBOSIS PROPHYLAXIS
     Route: 048
  3. COTRIMOXAZOLE [Suspect]
     Active Substance: SULFAMETHOXAZOLE\TRIMETHOPRIM
     Indication: URINARY TRACT INFECTION
     Route: 048
     Dates: start: 19960309
  4. SPASMO-URGENIN [ECHINAC PURPUR EXT,SERENOA REP EXT,TROSP CHLORIDE] [Suspect]
     Active Substance: HERBALS\TROSPIUM
     Indication: NOCTURIA
     Route: 048
     Dates: start: 19960509
  5. DIGIMERCK [Suspect]
     Active Substance: DIGITOXIN
     Indication: CARDIAC FAILURE
     Dosage: 1 DF, UNK
     Route: 048
  6. EUGLUCON [Suspect]
     Active Substance: GLYBURIDE
     Indication: DIABETES MELLITUS
     Dosage: 1 DF, UNK
     Route: 048
  7. ISOKET [Suspect]
     Active Substance: ISOSORBIDE DINITRATE
     Indication: CARDIAC FAILURE
     Dosage: DAILY DOSE 1 DF
     Route: 048

REACTIONS (1)
  - Stevens-Johnson syndrome [Recovered/Resolved with Sequelae]

NARRATIVE: CASE EVENT DATE: 19960518
